FAERS Safety Report 18853872 (Version 5)
Quarter: 2021Q2

REPORT INFORMATION
  Report Type: Spontaneous
  Country: PS (occurrence: PS)
  Receive Date: 20210205
  Receipt Date: 20210623
  Transmission Date: 20210717
  Serious: Yes (Death, Other)
  Sender: FDA-Public Use
  Company Number: PS-SA-2021SA035746

PATIENT
  Age: 4 Year
  Sex: Female
  Weight: 9 kg

DRUGS (1)
  1. MYOZYME [Suspect]
     Active Substance: ALGLUCOSIDASE ALFA
     Indication: GLYCOGEN STORAGE DISEASE TYPE II
     Dosage: 20 IU/KG, QOW
     Route: 041
     Dates: start: 20190708, end: 20201101

REACTIONS (9)
  - Hypertrophic cardiomyopathy [Fatal]
  - Therapeutic response decreased [Unknown]
  - Hypotonia [Recovering/Resolving]
  - Atelectasis [Fatal]
  - Pneumonia [Fatal]
  - Respiratory failure [Fatal]
  - Dysstasia [Unknown]
  - Disease progression [Unknown]
  - Gait inability [Unknown]
